FAERS Safety Report 4421326-1 (Version None)
Quarter: 2004Q3

REPORT INFORMATION
  Report Type: 
  Country: None (occurrence: None)
  Receive Date: 20040804
  Receipt Date: 20040726
  Transmission Date: 20050211
  Serious: Yes (Hospitalization)
  Sender: FDA-Public Use
  Company Number: 04P-087-0264442-00

PATIENT
  Age: 76 Year
  Sex: Male
  Weight: 62.5 kg

DRUGS (9)
  1. BIAXIN [Suspect]
     Indication: PNEUMONIA
     Dosage: 200 MG, 2 IN 1 D, PER ORAL
     Route: 048
     Dates: start: 20040605, end: 20040618
  2. THIATON (TIQUIZIUM BROMIDE) [Concomitant]
     Indication: GASTRITIS
     Dosage: 10 MG, 2 IN 1 D, PER ORAL
     Route: 048
     Dates: start: 20040612, end: 20040612
  3. FAMOTIDINE [Suspect]
     Indication: ABDOMINAL PAIN UPPER
     Dosage: 20 MG, 1 IN 1 D, PER ORAL
     Route: 048
     Dates: start: 20040612, end: 20040612
  4. TSUMURA SEIHAITOU [Concomitant]
  5. DEXTROMETHORPHAN HYDROBROMIDE [Concomitant]
  6. WARFARIN POTASSIUM [Concomitant]
  7. MAGNESIUM OXIDE [Concomitant]
  8. SOFALCONE [Concomitant]
  9. BROTIZOLAM [Concomitant]

REACTIONS (7)
  - ABDOMINAL PAIN [None]
  - ALANINE AMINOTRANSFERASE INCREASED [None]
  - ASPARTATE AMINOTRANSFERASE INCREASED [None]
  - DRUG ERUPTION [None]
  - GASTRITIS [None]
  - LIVER DISORDER [None]
  - OEDEMA [None]
